FAERS Safety Report 21611003 (Version 1)
Quarter: 2022Q4

REPORT INFORMATION
  Report Type: Spontaneous
  Country: US (occurrence: US)
  Receive Date: 20221117
  Receipt Date: 20221117
  Transmission Date: 20230112
  Serious: No
  Sender: FDA-Public Use
  Company Number: US-TEVA-2022-US-2823601

PATIENT
  Sex: Male

DRUGS (4)
  1. CEPHALEXIN [Suspect]
     Active Substance: CEPHALEXIN
     Indication: Skin ulcer
     Route: 065
     Dates: start: 2021
  2. PREDNISONE [Suspect]
     Active Substance: PREDNISONE
     Indication: Skin ulcer
     Dosage: FORM STRENGTH AND UNIT DOSE: 5 MG
     Dates: start: 2021
  3. Elvigin [Concomitant]
     Indication: Thyroid disorder
  4. ATENOLOL [Concomitant]
     Active Substance: ATENOLOL
     Indication: Product used for unknown indication
     Dates: start: 202110

REACTIONS (6)
  - Dermatitis contact [Unknown]
  - Blister [Unknown]
  - Ear swelling [Unknown]
  - Reaction to excipient [Unknown]
  - Erythema [Unknown]
  - Therapeutic product effect incomplete [Unknown]

NARRATIVE: CASE EVENT DATE: 20220101
